FAERS Safety Report 17306310 (Version 1)
Quarter: 2020Q1

REPORT INFORMATION
  Report Type: Spontaneous
  Country: PT (occurrence: PT)
  Receive Date: 20200123
  Receipt Date: 20200123
  Transmission Date: 20200409
  Serious: Yes (Hospitalization, Other)
  Sender: FDA-Public Use
  Company Number: PT-MYLANLABS-2020M1006731

PATIENT
  Age: 78 Year
  Sex: Male

DRUGS (1)
  1. AMIODARONE [Suspect]
     Active Substance: AMIODARONE
     Indication: ATRIAL FIBRILLATION
     Dosage: UNK
     Route: 065

REACTIONS (17)
  - Cardiothoracic ratio increased [Unknown]
  - Hypophonesis [Unknown]
  - Thyroid function test abnormal [Recovered/Resolved]
  - Condition aggravated [Unknown]
  - Hypothyroidism [Unknown]
  - Secondary hypothyroidism [Unknown]
  - Pericardial effusion [Recovered/Resolved]
  - Gastritis [Unknown]
  - Rales [Unknown]
  - Chest pain [Unknown]
  - Pleural effusion [Unknown]
  - Orthopnoea [Unknown]
  - Cardiac tamponade [Unknown]
  - Electrocardiogram low voltage [Unknown]
  - Jugular vein distension [Unknown]
  - Dyspnoea [Unknown]
  - Gastrointestinal angiodysplasia [Unknown]
